APPROVED DRUG PRODUCT: QUINAPRIL HYDROCHLORIDE
Active Ingredient: QUINAPRIL HYDROCHLORIDE
Strength: EQ 40MG BASE
Dosage Form/Route: TABLET;ORAL
Application: A077690 | Product #004 | TE Code: AB
Applicant: LUPIN LTD
Approved: Jun 20, 2006 | RLD: No | RS: Yes | Type: RX